FAERS Safety Report 15402836 (Version 2)
Quarter: 2018Q4

REPORT INFORMATION
  Report Type: Report from Study
  Country: ES (occurrence: ES)
  Receive Date: 20180919
  Receipt Date: 20181022
  Transmission Date: 20190204
  Serious: Yes (Hospitalization)
  Sender: FDA-Public Use
  Company Number: ES-PFIZER INC-2018373700

PATIENT
  Age: 66 Year
  Sex: Female

DRUGS (4)
  1. PACLITAXEL. [Suspect]
     Active Substance: PACLITAXEL
     Indication: BREAST CANCER METASTATIC
     Dosage: UNK
  2. BEVACIZUMAB. [Suspect]
     Active Substance: BEVACIZUMAB
     Indication: METASTATIC NEOPLASM
     Dosage: 10 MG/KG, EVERY 3 WEEKS (DOSE 15)
     Route: 042
     Dates: start: 20170130, end: 20170717
  3. PACLITAXEL. [Suspect]
     Active Substance: PACLITAXEL
     Dosage: DOSE 90
     Route: 042
     Dates: start: 20170130, end: 20170605
  4. BEVACIZUMAB. [Suspect]
     Active Substance: BEVACIZUMAB
     Indication: BREAST CANCER
     Dosage: UNK

REACTIONS (14)
  - Polyneuropathy [Not Recovered/Not Resolved]
  - Pyrexia [Recovered/Resolved]
  - Cough [Recovered/Resolved]
  - Polyuria [Recovered/Resolved]
  - Nausea [Recovered/Resolved]
  - Nausea [Recovering/Resolving]
  - Dyspnoea [Recovered/Resolved]
  - Hypertension [Not Recovered/Not Resolved]
  - Tachycardia [Recovered/Resolved]
  - Mucosal inflammation [Recovered/Resolved]
  - Anaemia [Not Recovered/Not Resolved]
  - Vomiting [Not Recovered/Not Resolved]
  - Aphonia [Recovered/Resolved]
  - Intervertebral disc protrusion [Not Recovered/Not Resolved]

NARRATIVE: CASE EVENT DATE: 20170224
